FAERS Safety Report 5242680-7 (Version None)
Quarter: 2007Q1

REPORT INFORMATION
  Report Type: 
  Country: None (occurrence: None)
  Receive Date: 20070214
  Receipt Date: 20070129
  Transmission Date: 20070707
  Serious: Yes (Hospitalization)
  Sender: FDA-Public Use
  Company Number: MEDI-0005374

PATIENT
  Age: 3 Month
  Sex: Female

DRUGS (2)
  1. SYNAGIS [Suspect]
     Indication: ANTIVIRAL PROPHYLAXIS
     Dosage: 1 IN 1 M, INTRAMUSCULAR
     Route: 030
     Dates: start: 20061201, end: 20061201
  2. GLYCEROPHOSPHAT(GLYCEROPHOSPHATE SODIUM) [Concomitant]

REACTIONS (6)
  - BLISTER [None]
  - DERMATITIS ATOPIC [None]
  - DERMATITIS INFECTED [None]
  - LYMPHOCYTE MORPHOLOGY ABNORMAL [None]
  - RASH [None]
  - SUPERINFECTION [None]
